FAERS Safety Report 13725058 (Version 1)
Quarter: 2017Q3

REPORT INFORMATION
  Report Type: Report from Study
  Country: CN (occurrence: CN)
  Receive Date: 20170706
  Receipt Date: 20170706
  Transmission Date: 20171127
  Serious: Yes (Other)
  Sender: FDA-Public Use
  Company Number: CN-BAYER-2017-122908

PATIENT
  Age: 59 Year
  Sex: Female

DRUGS (9)
  1. CYTARABINE. [Suspect]
     Active Substance: CYTARABINE
     Indication: ACUTE MYELOID LEUKAEMIA
  2. INTERLEUKIN-2 [Suspect]
     Active Substance: ALDESLEUKIN
     Indication: ACUTE MYELOID LEUKAEMIA
  3. SORAFENIB [Suspect]
     Active Substance: SORAFENIB
     Indication: ACUTE MYELOID LEUKAEMIA
  4. ACLARUBICIN [Suspect]
     Active Substance: ACLARUBICIN
     Indication: ACUTE MYELOID LEUKAEMIA
  5. G-CSF [Suspect]
     Active Substance: GRANULOCYTE COLONY-STIMULATING FACTOR NOS
     Indication: ACUTE MYELOID LEUKAEMIA
  6. HOMOHARRINGTONINE [Suspect]
     Active Substance: OMACETAXINE MEPESUCCINATE
     Indication: ACUTE MYELOID LEUKAEMIA
  7. IDARUBICIN [Suspect]
     Active Substance: IDARUBICIN
     Indication: ACUTE MYELOID LEUKAEMIA
  8. INTERFERON [Suspect]
     Active Substance: INTERFERON
     Indication: ACUTE MYELOID LEUKAEMIA
  9. THALIDOMIDE [Suspect]
     Active Substance: THALIDOMIDE
     Indication: ACUTE MYELOID LEUKAEMIA

REACTIONS (3)
  - Bone marrow failure [None]
  - Product use in unapproved indication [None]
  - Off label use [None]
